FAERS Safety Report 7930246-7 (Version None)
Quarter: 2011Q4

REPORT INFORMATION
  Report Type: 
  Country: None (occurrence: None)
  Receive Date: 20111121
  Receipt Date: 20110816
  Transmission Date: 20120403
  Serious: No
  Sender: FDA-Public Use
  Company Number: US-BAYER-2011-078723

PATIENT
  Sex: Female

DRUGS (3)
  1. ALEVE (CAPLET) [Suspect]
     Indication: DYSMENORRHOEA
     Dosage: 1 DF, UNK
  2. SUDAFED 12 HOUR [Concomitant]
  3. EXCEDRIN ASPIRIN FREE [Concomitant]
     Dosage: 2 DF, UNK

REACTIONS (2)
  - DRUG ADMINISTRATION ERROR [None]
  - ABDOMINAL PAIN [None]
